FAERS Safety Report 7550674-1 (Version None)
Quarter: 2011Q2

REPORT INFORMATION
  Report Type: 
  Country: None (occurrence: None)
  Receive Date: 20110609
  Receipt Date: 20110524
  Transmission Date: 20111010
  Serious: Yes (Death, Hospitalization)
  Sender: FDA-Public Use
  Company Number: 2011MA006467

PATIENT
  Age: 75 Year
  Sex: Male

DRUGS (3)
  1. RITUXIMAB [Concomitant]
  2. CYCLOPHOSPHAMIDE [Concomitant]
  3. FLUDARABINE PHOSPHATE [Suspect]
     Indication: CHRONIC LYMPHOCYTIC LEUKAEMIA
     Dates: start: 20070201, end: 20070901

REACTIONS (6)
  - PROGRESSIVE MULTIFOCAL LEUKOENCEPHALOPATHY [None]
  - NEUROLOGICAL DECOMPENSATION [None]
  - JC VIRUS TEST POSITIVE [None]
  - RESPIRATORY FAILURE [None]
  - DISEASE PROGRESSION [None]
  - CHRONIC LYMPHOCYTIC LEUKAEMIA RECURRENT [None]
